FAERS Safety Report 5303676-X (Version None)
Quarter: 2007Q2

REPORT INFORMATION
  Report Type: 
  Country: None (occurrence: None)
  Receive Date: 20070420
  Receipt Date: 20070410
  Transmission Date: 20071010
  Serious: Yes (Hospitalization, Other)
  Sender: FDA-Public Use
  Company Number: US-PFIZER INC-2007005690

PATIENT
  Sex: Male
  Weight: 90.7 kg

DRUGS (1)
  1. BEXTRA [Suspect]
     Indication: OSTEITIS
     Route: 048

REACTIONS (3)
  - ANXIETY [None]
  - MYOCARDIAL INFARCTION [None]
  - SEASONAL AFFECTIVE DISORDER [None]
